FAERS Safety Report 12690852 (Version 1)
Quarter: 2016Q3

REPORT INFORMATION
  Report Type: Spontaneous
  Country: JP (occurrence: JP)
  Receive Date: 20160826
  Receipt Date: 20160826
  Transmission Date: 20161109
  Serious: Yes (Hospitalization)
  Sender: FDA-Public Use
  Company Number: JP-ALLERGAN-1666818US

PATIENT
  Age: 77 Year
  Sex: Male

DRUGS (6)
  1. FEBURIC [Concomitant]
     Active Substance: FEBUXOSTAT
     Route: 048
  2. URIEF [Suspect]
     Active Substance: SILODOSIN
     Indication: BENIGN PROSTATIC HYPERPLASIA
     Dosage: UNK
     Route: 048
  3. TENELIA [Concomitant]
     Active Substance: TENELIGLIPTIN
     Route: 048
  4. BAKTAR [Concomitant]
     Active Substance: SULFAMETHOXAZOLE\TRIMETHOPRIM
     Route: 048
  5. MAGLAX [Concomitant]
     Active Substance: MAGNESIUM OXIDE
     Route: 048
  6. ATELEC [Concomitant]
     Active Substance: CILNIDIPINE
     Route: 048

REACTIONS (1)
  - Interstitial lung disease [Unknown]
